FAERS Safety Report 11711752 (Version 1)
Quarter: 2015Q4

REPORT INFORMATION
  Report Type: Spontaneous
  Country: US (occurrence: US)
  Receive Date: 20151104
  Receipt Date: 20151104
  Transmission Date: 20160304
  Serious: No
  Sender: FDA-Public Use
  Company Number: US-ELI_LILLY_AND_COMPANY-US201103005863

PATIENT
  Age: 60 Year
  Sex: Female

DRUGS (2)
  1. FORTEO [Suspect]
     Active Substance: TERIPARATIDE
     Indication: OSTEOPOROSIS
     Dosage: 20 UG, QD
     Route: 065
     Dates: start: 20110228
  2. FORTEO [Suspect]
     Active Substance: TERIPARATIDE
     Dosage: 20 UG, QD
     Route: 065

REACTIONS (8)
  - Upper limb fracture [Unknown]
  - Anxiety [Unknown]
  - Musculoskeletal chest pain [Unknown]
  - Hypophagia [Recovered/Resolved]
  - Contusion [Unknown]
  - Surgery [Recovering/Resolving]
  - Surgery [Unknown]
  - Dyspnoea [Unknown]

NARRATIVE: CASE EVENT DATE: 201103
